FAERS Safety Report 6241473-1 (Version None)
Quarter: 2009Q2

REPORT INFORMATION
  Report Type: 
  Country: None (occurrence: None)
  Receive Date: 20090623
  Receipt Date: 20030925
  Transmission Date: 20091009
  Serious: Yes (Other)
  Sender: FDA-Public Use
  Company Number: DE-ROCHE-341586

PATIENT
  Sex: Female

DRUGS (37)
  1. MYCOPHENOLATE MOFETIL [Suspect]
     Route: 048
     Dates: start: 20040812
  2. MYCOPHENOLATE MOFETIL [Suspect]
     Route: 048
     Dates: start: 20041126
  3. MYCOPHENOLATE MOFETIL [Suspect]
     Route: 048
     Dates: start: 20050214
  4. MYCOPHENOLATE MOFETIL [Suspect]
     Route: 048
     Dates: start: 20060406
  5. DACLIZUMAB [Suspect]
     Route: 042
     Dates: start: 20030514
  6. DACLIZUMAB [Suspect]
     Dosage: DOSE RECEIVED ON WEEK 2 VISIT
     Route: 042
     Dates: start: 20030528
  7. DACLIZUMAB [Suspect]
     Dosage: DOSE RECEIVED ON WEEK 4 VISIT
     Route: 042
     Dates: start: 20030611
  8. DACLIZUMAB [Suspect]
     Route: 042
     Dates: start: 20030627
  9. MYCOPHENOLATE MOFETIL [Suspect]
     Route: 048
     Dates: start: 20030514, end: 20040811
  10. SIROLIMUS [Suspect]
     Route: 048
     Dates: start: 20030514, end: 20030710
  11. SIROLIMUS [Suspect]
     Route: 048
     Dates: start: 20030711, end: 20031216
  12. SIROLIMUS [Suspect]
     Route: 048
     Dates: start: 20031217, end: 20040506
  13. SIROLIMUS [Suspect]
     Route: 048
     Dates: start: 20040507, end: 20041125
  14. SIROLIMUS [Suspect]
     Route: 048
     Dates: start: 20041126, end: 20050321
  15. TACROLIMUS [Suspect]
     Route: 048
     Dates: start: 20050321, end: 20050321
  16. TACROLIMUS [Suspect]
     Route: 048
     Dates: start: 20050322, end: 20060406
  17. TACROLIMUS [Suspect]
     Route: 048
     Dates: start: 20060407
  18. DECORTIN [Suspect]
     Route: 048
     Dates: start: 20030610
  19. PREDNISOLONE [Suspect]
     Route: 048
     Dates: start: 20030515, end: 20030515
  20. PREDNISOLONE [Suspect]
     Route: 048
     Dates: start: 20030516, end: 20030517
  21. PREDNISOLONE [Suspect]
     Route: 048
     Dates: start: 20030518, end: 20030523
  22. PREDNISOLONE [Suspect]
     Route: 048
     Dates: start: 20030525, end: 20040104
  23. PREDNISOLONE [Suspect]
     Route: 048
     Dates: start: 20040105, end: 20041125
  24. PREDNISOLONE [Suspect]
     Route: 048
     Dates: start: 20041126, end: 20050420
  25. KEPINOL [Concomitant]
     Route: 048
     Dates: start: 20030514, end: 20040505
  26. ACTONEL [Concomitant]
     Route: 048
  27. BELOC-ZOK [Concomitant]
     Route: 048
     Dates: start: 20030519
  28. NORVASC [Concomitant]
     Route: 048
     Dates: start: 20030519
  29. RANITIDINE HCL [Concomitant]
     Route: 048
     Dates: start: 20030531
  30. PRAVASTATIN SODIUM [Concomitant]
     Route: 048
     Dates: start: 20030526
  31. CYNT [Concomitant]
     Route: 048
     Dates: start: 20030530
  32. NEORECORMON [Concomitant]
     Route: 058
  33. FERRO SANOL [Concomitant]
     Dosage: DRUG: FERROSANOL DUODENAL
     Route: 048
     Dates: start: 20030618
  34. DOXEPIN [Concomitant]
     Route: 048
     Dates: start: 20030519, end: 20030531
  35. MOXIFLOXACIN HCL [Concomitant]
     Route: 048
     Dates: start: 20030516, end: 20030715
  36. NITRENDIPIN [Concomitant]
     Route: 048
     Dates: start: 20030519, end: 20030527
  37. RISEDRONATE SODIUM [Concomitant]
     Dosage: DRUG: RISEDRONAT NATRIUM
     Route: 048
     Dates: start: 20030516

REACTIONS (1)
  - LYMPHOCELE [None]
